FAERS Safety Report 23411380 (Version 1)
Quarter: 2024Q1

REPORT INFORMATION
  Report Type: Spontaneous
  Country: US (occurrence: None)
  Receive Date: 20240116
  Receipt Date: 20240116
  Transmission Date: 20240410
  Serious: Yes (Hospitalization)
  Sender: FDA-Public Use
  Company Number: None

PATIENT
  Age: 85 Year
  Sex: Female
  Weight: 63.9 kg

DRUGS (2)
  1. ESCITALOPRAM [Suspect]
     Active Substance: ESCITALOPRAM OXALATE
     Indication: Anxiety
     Dosage: FREQUENCY : DAILY;?
     Route: 048
     Dates: start: 20231229, end: 20240106
  2. CHLORTHALIDONE [Suspect]
     Active Substance: CHLORTHALIDONE
     Dosage: FREQUENCY : DAILY;?
     Route: 048

REACTIONS (1)
  - Hyponatraemia [None]

NARRATIVE: CASE EVENT DATE: 20240106
